FAERS Safety Report 5146540-1 (Version None)
Quarter: 2006Q4

REPORT INFORMATION
  Report Type: 
  Country: None (occurrence: None)
  Receive Date: 20061109
  Receipt Date: 20050511
  Transmission Date: 20070319
  Serious: Yes (Death, Other)
  Sender: FDA-Public Use
  Company Number: PHFR2005GB01772

PATIENT
  Sex: Female

DRUGS (1)
  1. ZOMETA [Suspect]
     Indication: HYPERCALCAEMIA
     Dosage: MONTHLY

REACTIONS (5)
  - GINGIVITIS [None]
  - MULTIPLE MYELOMA [None]
  - OSTEONECROSIS [None]
  - RENAL AMYLOIDOSIS [None]
  - RENAL FAILURE [None]
